FAERS Safety Report 23090555 (Version 1)
Quarter: 2023Q4

REPORT INFORMATION
  Report Type: Spontaneous
  Country: GB (occurrence: GB)
  Receive Date: 20231020
  Receipt Date: 20231020
  Transmission Date: 20240110
  Serious: Yes (Death, Hospitalization)
  Sender: FDA-Public Use
  Company Number: GB-AMGEN-GBRSP2023183756

PATIENT
  Sex: Male

DRUGS (6)
  1. XGEVA [Suspect]
     Active Substance: DENOSUMAB
     Indication: Metastases to bone
     Dosage: UNK
     Route: 065
  2. XGEVA [Suspect]
     Active Substance: DENOSUMAB
     Indication: Prostate cancer metastatic
  3. ENZALUTAMIDE [Concomitant]
     Active Substance: ENZALUTAMIDE
     Indication: Prostate cancer metastatic
  4. LEUPROLIDE ACETATE [Concomitant]
     Active Substance: LEUPROLIDE ACETATE
     Indication: Prostate cancer metastatic
  5. ABIRATERONE [Concomitant]
     Active Substance: ABIRATERONE
     Indication: Prostate cancer metastatic
  6. PREDNISONE [Concomitant]
     Active Substance: PREDNISONE
     Indication: Prostate cancer metastatic

REACTIONS (10)
  - Death [Fatal]
  - Hypercalcaemia [Recovered/Resolved]
  - Acute kidney injury [Not Recovered/Not Resolved]
  - Prostate cancer metastatic [Unknown]
  - Confusional state [Unknown]
  - Hallucination [Unknown]
  - Blood parathyroid hormone decreased [Unknown]
  - Blood phosphorus increased [Unknown]
  - Adverse event [Unknown]
  - General physical health deterioration [Not Recovered/Not Resolved]
